FAERS Safety Report 7107250 (Version 6)
Quarter: 2018Q3

REPORT INFORMATION
  Report Type: Report from Study
  Country: JP (occurrence: JP)
  Receive Date: 20090908
  Receipt Date: 20180914
  Transmission Date: 20181010
  Serious: Yes (Hospitalization, Other)
  Sender: FDA-Public Use
  Company Number: PHHY2009JP33492

PATIENT
  Age: 83 Year
  Sex: Male

DRUGS (12)
  1. TASIGNA [Suspect]
     Active Substance: NILOTINIB
     Indication: CHRONIC MYELOID LEUKAEMIA
     Dosage: 200 MG, QD
     Route: 048
     Dates: start: 20090410, end: 20090730
  2. ALLOID [Concomitant]
     Indication: CHRONIC MYELOID LEUKAEMIA
     Dosage: 60 UL, UNK
     Route: 048
  3. TOUGHMAC E [Concomitant]
     Active Substance: AMYLASE\LIPASE\PROTEASE
     Indication: CHRONIC MYELOID LEUKAEMIA
     Dosage: 3 DF, UNK
     Route: 048
  4. WARFARIN POTASSIUM [Concomitant]
     Active Substance: WARFARIN POTASSIUM
     Dosage: 3 NG, UNK
     Route: 048
  5. HEPARIN SODIUM. [Concomitant]
     Active Substance: HEPARIN SODIUM
     Indication: ATRIAL FIBRILLATION
     Dosage: 8000 IU, UNK
     Route: 041
     Dates: start: 20090727, end: 20090804
  6. GASMOTIN [Concomitant]
     Active Substance: MOSAPRIDE CITRATE
     Indication: CHRONIC MYELOID LEUKAEMIA
     Dosage: 15 MG, UNK
     Route: 048
  7. LENDORMIN [Concomitant]
     Active Substance: BROTIZOLAM
     Indication: CHRONIC MYELOID LEUKAEMIA
     Dosage: 0.25 MG, UNK
     Route: 048
  8. WARFARIN POTASSIUM [Concomitant]
     Active Substance: WARFARIN POTASSIUM
     Dosage: 1 NG, UNK
     Route: 048
  9. TASIGNA [Suspect]
     Active Substance: NILOTINIB
     Dosage: 100 MG, BID
     Route: 048
     Dates: start: 20090827
  10. ALOSITOL [Concomitant]
     Active Substance: ALLOPURINOL
     Indication: CHRONIC MYELOID LEUKAEMIA
     Dosage: 100 MG, UNK
     Route: 048
  11. METHYCOBAL [Concomitant]
     Active Substance: METHYLCOBALAMIN
     Indication: CHRONIC MYELOID LEUKAEMIA
     Dosage: 1500 UG, UNK
     Route: 048
  12. WARFARIN POTASSIUM [Concomitant]
     Active Substance: WARFARIN POTASSIUM
     Indication: ATRIAL FIBRILLATION
     Dosage: 2 NG, UNK
     Route: 048
     Dates: start: 20090730

REACTIONS (2)
  - Atrial fibrillation [Recovered/Resolved]
  - Sinus node dysfunction [Unknown]

NARRATIVE: CASE EVENT DATE: 20090727
